FAERS Safety Report 8615441-6 (Version None)
Quarter: 2012Q3

REPORT INFORMATION
  Report Type: 
  Country: None (occurrence: None)
  Receive Date: 20120823
  Receipt Date: 20120813
  Transmission Date: 20120928
  Serious: Yes (Hospitalization)
  Sender: FDA-Public Use
  Company Number: US-PURDUE-USA-2012-0091571

PATIENT
  Sex: Male
  Weight: 140.59 kg

DRUGS (16)
  1. OXYCODONE HCL [Suspect]
     Indication: PAIN
     Dosage: 40 MG, BID
     Route: 048
     Dates: start: 20120802, end: 20120809
  2. FISH OIL [Concomitant]
     Dosage: UNK, BID
  3. STOOL SOFTENER [Concomitant]
  4. POTASSIUM [Concomitant]
     Indication: PRODUCT USED FOR UNKNOWN INDICATION
     Dosage: 10 MG, BID
  5. DULCOLAX [Concomitant]
  6. AMITRIPTYLINE HYDROCHLORIDE [Concomitant]
     Dosage: 50 MG, UNK
  7. OMEPRAZOLE [Concomitant]
     Indication: PRODUCT USED FOR UNKNOWN INDICATION
     Dosage: 20 MG, DAILY
  8. MORPHINE SULFATE [Concomitant]
     Indication: PRODUCT USED FOR UNKNOWN INDICATION
     Dosage: 30 MG, BID
     Route: 048
  9. LASIX [Concomitant]
     Indication: PRODUCT USED FOR UNKNOWN INDICATION
     Dosage: 80 MG, UNK
  10. MS CONTIN [Suspect]
     Indication: PAIN
     Dosage: 30 MG, TID
     Route: 048
  11. METFORMIN [Concomitant]
     Indication: PRODUCT USED FOR UNKNOWN INDICATION
     Dosage: 1000 MG, BID
  12. NEURONTIN [Concomitant]
     Dosage: 300 UNK, UNK
  13. SIMVASTATIN [Concomitant]
     Indication: PRODUCT USED FOR UNKNOWN INDICATION
     Dosage: 20 MG, DAILY
  14. LISINOPRIL [Concomitant]
     Indication: PRODUCT USED FOR UNKNOWN INDICATION
     Dosage: 10 MG, UNK
  15. COUMADIN [Concomitant]
     Indication: PRODUCT USED FOR UNKNOWN INDICATION
     Dosage: 22.5 MG, UNK
     Route: 048
  16. FENOFIBRATE [Concomitant]
     Indication: PRODUCT USED FOR UNKNOWN INDICATION
     Dosage: 60 UNK, UNK

REACTIONS (2)
  - MYOCLONUS [None]
  - RENAL FAILURE ACUTE [None]
